FAERS Safety Report 18414131 (Version 1)
Quarter: 2020Q4

REPORT INFORMATION
  Report Type: Report from Study
  Country: IT (occurrence: IT)
  Receive Date: 20201022
  Receipt Date: 20201022
  Transmission Date: 20210114
  Serious: Yes (Hospitalization)
  Sender: FDA-Public Use
  Company Number: IT-TEVA-2020-IT-1840036

PATIENT
  Age: 84 Year
  Sex: Female

DRUGS (4)
  1. LUVION 50 MG COMPRESSE [Suspect]
     Active Substance: CANRENONE
     Route: 048
     Dates: start: 20200101, end: 20200915
  2. BISOPROLOL FUMARATE. [Suspect]
     Active Substance: BISOPROLOL FUMARATE
     Dosage: 2.5MG
     Route: 048
     Dates: start: 20200101, end: 20200915
  3. LASIX [Concomitant]
     Active Substance: FUROSEMIDE
  4. PANTORC [Concomitant]
     Active Substance: PANTOPRAZOLE SODIUM

REACTIONS (1)
  - Presyncope [Recovering/Resolving]

NARRATIVE: CASE EVENT DATE: 20200915
